FAERS Safety Report 5812027-3 (Version None)
Quarter: 2008Q3

REPORT INFORMATION
  Report Type: 
  Country: None (occurrence: None)
  Receive Date: 20080716
  Receipt Date: 20080707
  Transmission Date: 20090109
  Serious: Yes (Hospitalization)
  Sender: FDA-Public Use
  Company Number: PHHY2008JP09885

PATIENT
  Age: 81 Year
  Sex: Female

DRUGS (5)
  1. VOLTAREN [Suspect]
     Indication: SPINAL COMPRESSION FRACTURE
     Dosage: UNK
     Route: 054
     Dates: start: 20050901, end: 20051228
  2. VOLTAREN [Suspect]
     Indication: PAIN MANAGEMENT
  3. ASPIRIN [Suspect]
     Indication: ANGINA PECTORIS
     Dosage: UNK
     Route: 048
     Dates: start: 20060101
  4. MOBIC [Concomitant]
     Indication: BACK PAIN
     Dosage: UNK
     Route: 048
     Dates: start: 20051228
  5. H2 BLOCKER [Concomitant]

REACTIONS (7)
  - ENDOSCOPY [None]
  - ENTEROCLYSIS [None]
  - GASTROINTESTINAL HAEMORRHAGE [None]
  - HAEMOGLOBIN DECREASED [None]
  - MELAENA [None]
  - RECTAL ULCER [None]
  - SMALL INTESTINE ULCER [None]
